FAERS Safety Report 8080773-X (Version None)
Quarter: 2012Q1

REPORT INFORMATION
  Report Type: 
  Country: None (occurrence: None)
  Receive Date: 20120130
  Receipt Date: 20120127
  Transmission Date: 20120608
  Serious: Yes (Life-Threatening, Hospitalization)
  Sender: FDA-Public Use
  Company Number: PHHY2012DE001549

PATIENT
  Age: 69 Year
  Sex: Female
  Weight: 110 kg

DRUGS (5)
  1. RAMIPRIL [Suspect]
     Dosage: 2 DF, QD
     Route: 048
     Dates: start: 20111201
  2. RASILEZ [Suspect]
     Dosage: 1 DF, QD
     Route: 048
     Dates: start: 20111122, end: 20111122
  3. RASILEZ [Suspect]
     Indication: HYPERTENSION
     Dosage: 1 DF, QD
     Route: 048
     Dates: start: 20101202, end: 20111209
  4. RAMIPRIL [Suspect]
     Indication: HYPERTENSION
     Dosage: 2 DF, QD
     Route: 048
     Dates: start: 20080101, end: 20111214
  5. TORSEMIDE [Concomitant]
     Indication: OEDEMA PERIPHERAL
     Dosage: 1 DF, QD
     Route: 048
     Dates: start: 20080101

REACTIONS (2)
  - METABOLIC ACIDOSIS [None]
  - HYPERKALAEMIA [None]
